FAERS Safety Report 26130431 (Version 1)
Quarter: 2025Q4

REPORT INFORMATION
  Report Type: Spontaneous
  Country: US (occurrence: US)
  Receive Date: 20251208
  Receipt Date: 20251208
  Transmission Date: 20260117
  Serious: No
  Sender: TRIS PHARMA, INC.
  Company Number: US-TRIS PHARMA, INC.-25US012167

PATIENT
  Age: 7 Year

DRUGS (3)
  1. ONYDA XR [Suspect]
     Active Substance: CLONIDINE HYDROCHLORIDE
     Indication: Attention deficit hyperactivity disorder
     Dosage: 2 MILLILITRE, ONCE DAILY AT NIGHT RIGHT BEFORE BEDTIME (QD)
  2. ONYDA XR [Suspect]
     Active Substance: CLONIDINE HYDROCHLORIDE
     Dosage: 0.5 MILLILITRE, BID
  3. ONYDA XR [Suspect]
     Active Substance: CLONIDINE HYDROCHLORIDE
     Dosage: 0.5 MILLILITRE

REACTIONS (8)
  - Off label use [Unknown]
  - Wrong technique in product usage process [Unknown]
  - Product physical consistency issue [Unknown]
  - Syringe issue [Unknown]
  - Product use issue [Unknown]
  - Product dose omission issue [Unknown]
  - Product availability issue [Unknown]
  - Product packaging quantity issue [Unknown]
